FAERS Safety Report 11804748 (Version 1)
Quarter: 2015Q4

REPORT INFORMATION
  Report Type: Report from Study
  Country: GB (occurrence: GB)
  Receive Date: 20151205
  Receipt Date: 20151205
  Transmission Date: 20160305
  Serious: Yes (Other)
  Sender: FDA-Public Use
  Company Number: GB-AMGEN-GBRNI2015129920

PATIENT
  Age: 11 Year
  Sex: Female

DRUGS (2)
  1. ETANERCEPT [Suspect]
     Active Substance: ETANERCEPT
     Indication: JUVENILE IDIOPATHIC ARTHRITIS
     Dosage: 16 MG, 2 TIMES/WK
     Route: 058
     Dates: start: 20040929
  2. METHYLPREDNISOLONE. [Concomitant]
     Active Substance: METHYLPREDNISOLONE
     Dosage: UNK
     Route: 042
     Dates: start: 200409, end: 20040930

REACTIONS (4)
  - Macular oedema [Unknown]
  - Condition aggravated [Recovering/Resolving]
  - Uveitis [Recovering/Resolving]
  - Papilloedema [Unknown]

NARRATIVE: CASE EVENT DATE: 2004
